FAERS Safety Report 16668187 (Version 2)
Quarter: 2020Q1

REPORT INFORMATION
  Report Type: Spontaneous
  Country: US (occurrence: US)
  Receive Date: 20190805
  Receipt Date: 20200313
  Transmission Date: 20200409
  Serious: No
  Sender: FDA-Public Use
  Company Number: US-PFIZER INC-2019330659

PATIENT
  Age: 56 Year
  Sex: Female

DRUGS (1)
  1. SOMAVERT [Suspect]
     Active Substance: PEGVISOMANT
     Indication: HYPERPITUITARISM
     Dosage: 25 MG, DAILY
     Route: 058
     Dates: start: 20170919

REACTIONS (2)
  - Skin discolouration [Unknown]
  - Insulin-like growth factor abnormal [Unknown]
